FAERS Safety Report 6492582-3 (Version None)
Quarter: 2009Q4

REPORT INFORMATION
  Report Type: 
  Country: None (occurrence: None)
  Receive Date: 20091214
  Receipt Date: 20091202
  Transmission Date: 20100525
  Serious: Yes (Hospitalization)
  Sender: FDA-Public Use
  Company Number: PHEH2009US17067

PATIENT
  Sex: Female

DRUGS (2)
  1. EXJADE [Suspect]
     Indication: IRON OVERLOAD
     Dosage: 1000 MG DAILY
     Route: 048
  2. EXJADE [Suspect]
     Indication: HAEMOSIDEROSIS

REACTIONS (6)
  - ARTHRALGIA [None]
  - FEBRILE NEUTROPENIA [None]
  - JOINT SWELLING [None]
  - POSTOPERATIVE WOUND INFECTION [None]
  - SEPSIS [None]
  - URINARY TRACT INFECTION [None]
